FAERS Safety Report 5153063-2 (Version None)
Quarter: 2006Q4

REPORT INFORMATION
  Report Type: 
  Country: None (occurrence: None)
  Receive Date: 20061117
  Receipt Date: 20061108
  Transmission Date: 20070319
  Serious: Yes (Other)
  Sender: FDA-Public Use
  Company Number: US-JNJFOC-20060606373

PATIENT
  Sex: Female
  Weight: 72.9 kg

DRUGS (6)
  1. REMICADE [Suspect]
     Indication: CROHN'S DISEASE
     Dosage: AT WEEK 0, 2, AND 6
     Route: 042
  2. COLAZAL [Concomitant]
     Dosage: 3
     Route: 048
  3. PREDNISONE TAB [Concomitant]
     Route: 048
  4. M.V.I. [Concomitant]
     Route: 048
  5. PROCARDIA [Concomitant]
     Indication: HYPERTENSION
     Route: 048
  6. AMITRIPTYLINE HCL [Concomitant]
     Indication: MIGRAINE PROPHYLAXIS
     Route: 048

REACTIONS (5)
  - COLITIS ULCERATIVE [None]
  - DRUG EXPOSURE DURING PREGNANCY [None]
  - HYPERTENSION [None]
  - MIGRAINE [None]
  - PREMATURE LABOUR [None]
